FAERS Safety Report 9383821 (Version 2)
Quarter: 2013Q3

REPORT INFORMATION
  Report Type: Spontaneous
  Country: BR (occurrence: BR)
  Receive Date: 20130704
  Receipt Date: 20130904
  Transmission Date: 20140515
  Serious: Yes (Other)
  Sender: FDA-Public Use
  Company Number: BR-ASTRAZENECA-2013SE49300

PATIENT
  Age: 56 Year
  Sex: Male
  Weight: 114 kg

DRUGS (7)
  1. SELOZOK [Suspect]
     Indication: HYPERTENSION
     Route: 048
     Dates: start: 201302, end: 20130621
  2. SELOZOK [Suspect]
     Indication: HEART RATE ABNORMAL
     Route: 048
     Dates: start: 201302, end: 20130621
  3. SELOZOK [Suspect]
     Indication: HYPERTENSION
     Route: 048
     Dates: start: 20130622, end: 20130624
  4. SELOZOK [Suspect]
     Indication: HEART RATE ABNORMAL
     Route: 048
     Dates: start: 20130622, end: 20130624
  5. SELOZOK [Suspect]
     Indication: HYPERTENSION
     Route: 048
     Dates: start: 20130625, end: 201307
  6. SELOZOK [Suspect]
     Indication: HEART RATE ABNORMAL
     Route: 048
     Dates: start: 20130625, end: 201307
  7. SUCUPIRA [Concomitant]
     Indication: OSTEOARTHRITIS
     Dates: start: 201305

REACTIONS (9)
  - Blood pressure increased [Recovered/Resolved]
  - Blood thyroid stimulating hormone increased [Not Recovered/Not Resolved]
  - Corneal disorder [Recovered/Resolved]
  - Muscle spasms [Recovered/Resolved]
  - Tinnitus [Recovered/Resolved]
  - Chest pain [Recovered/Resolved]
  - Dyspnoea [Not Recovered/Not Resolved]
  - Drug dose omission [Recovered/Resolved]
  - Off label use [Recovered/Resolved]
